FAERS Safety Report 5268393-3 (Version None)
Quarter: 2007Q1

REPORT INFORMATION
  Report Type: 
  Country: None (occurrence: None)
  Receive Date: 20070319
  Receipt Date: 20070314
  Transmission Date: 20070707
  Serious: Yes (Life-Threatening, Hospitalization, Other)
  Sender: FDA-Public Use
  Company Number: PHBS2007PE03306

PATIENT
  Age: 31 Year

DRUGS (3)
  1. CLOZAPINE [Suspect]
     Indication: ACUTE PSYCHOSIS
     Dosage: 400 MG/DAY
     Route: 048
     Dates: start: 20061228, end: 20070221
  2. CLONAZEPAM [Concomitant]
     Indication: INSOMNIA
     Dosage: 2 MG/DAY
     Dates: start: 20061228, end: 20070221
  3. VALPROATE SODIUM [Concomitant]
     Indication: AGGRESSION
     Dosage: 500 MG/DAY
     Dates: start: 20061228, end: 20070221

REACTIONS (14)
  - ABDOMINAL PAIN [None]
  - AGRANULOCYTOSIS [None]
  - AMOEBIASIS [None]
  - DIARRHOEA [None]
  - HAEMATOCRIT DECREASED [None]
  - HAEMOGLOBIN DECREASED [None]
  - JAUNDICE [None]
  - LEUKAEMOID REACTION [None]
  - ORAL CANDIDIASIS [None]
  - PHARYNGITIS [None]
  - PLATELET COUNT INCREASED [None]
  - PYREXIA [None]
  - SEPSIS [None]
  - VOMITING [None]
